FAERS Safety Report 24304756 (Version 1)
Quarter: 2024Q3

REPORT INFORMATION
  Report Type: Spontaneous
  Country: CN (occurrence: CN)
  Receive Date: 20240910
  Receipt Date: 20240910
  Transmission Date: 20241017
  Serious: Yes (Other)
  Sender: JOHNSON AND JOHNSON
  Company Number: CN-BAYER-2024A129268

PATIENT
  Age: 37 Year
  Sex: Male
  Weight: 74 kg

DRUGS (1)
  1. XARELTO [Interacting]
     Active Substance: RIVAROXABAN
     Indication: Thrombosis prophylaxis
     Dosage: 10 MG, BID
     Route: 048
     Dates: start: 20240727, end: 20240802

REACTIONS (4)
  - Rash papular [Recovering/Resolving]
  - Contraindicated product prescribed [Unknown]
  - Contraindicated product administered [Unknown]
  - Labelled drug-disease interaction medication error [Unknown]

NARRATIVE: CASE EVENT DATE: 20240727
